FAERS Safety Report 9579539 (Version 3)
Quarter: 2014Q1

REPORT INFORMATION
  Report Type: Spontaneous
  Country: US (occurrence: US)
  Receive Date: 20131001
  Receipt Date: 20140226
  Transmission Date: 20141002
  Serious: No
  Sender: FDA-Public Use
  Company Number: US-AMGEN-USASP2013014286

PATIENT
  Age: 64 Year
  Sex: Male
  Weight: 81.63 kg

DRUGS (10)
  1. ENBREL [Suspect]
     Indication: RHEUMATOID ARTHRITIS
     Dosage: 50 MG
     Route: 058
     Dates: start: 2012, end: 20130401
  2. OMEPRAZOLE [Concomitant]
     Dosage: 10 MG, UNK
  3. METHOTREXATE [Concomitant]
     Dosage: 1 G, UNK
  4. TRIAMCINOLON                       /00031901/ [Concomitant]
     Dosage: 0.1 %, UNK
  5. FLUTICASONE [Concomitant]
     Dosage: 50 MUG, UNK
  6. SIMETHICONE [Concomitant]
     Dosage: 180 MG, UNK
  7. CALCIUM [Concomitant]
     Dosage: 1200, UNK
  8. VITAMIN D                          /00107901/ [Concomitant]
     Dosage: 1000 UNIT, UNK
  9. IBU [Concomitant]
     Dosage: 400 MG, UNK
  10. MULTIVITAMINS, PLAIN [Concomitant]
     Dosage: UNK

REACTIONS (3)
  - Bone loss [Unknown]
  - Arthropathy [Unknown]
  - Bone disorder [Unknown]
